FAERS Safety Report 20037829 (Version 1)
Quarter: 2021Q4

REPORT INFORMATION
  Report Type: Spontaneous
  Country: US (occurrence: US)
  Receive Date: 20211105
  Receipt Date: 20211105
  Transmission Date: 20220303
  Serious: Yes (Other)
  Sender: FDA-Public Use
  Company Number: US-NOVARTISPH-NVSC2021US248667

PATIENT
  Age: 31 Year
  Sex: Female

DRUGS (2)
  1. MAYZENT [Suspect]
     Active Substance: SIPONIMOD
     Indication: Multiple sclerosis
     Dosage: 1 DF, QD (SMALL PILL EVERYDAY)
     Route: 065
  2. BACLOFEN [Concomitant]
     Active Substance: BACLOFEN
     Indication: Product used for unknown indication
     Dosage: UNK, WHEN IT GETS REAL BAD AT NIGHT.
     Route: 065

REACTIONS (3)
  - Neuropathy peripheral [Unknown]
  - Hypoaesthesia [Unknown]
  - Weight decreased [Unknown]

NARRATIVE: CASE EVENT DATE: 20211028
